FAERS Safety Report 5851336-9 (Version None)
Quarter: 2008Q3

REPORT INFORMATION
  Report Type: 
  Country: None (occurrence: None)
  Receive Date: 20080731
  Receipt Date: 20080423
  Transmission Date: 20090109
  Serious: No
  Sender: FDA-Public Use
  Company Number: 2006PV017458

PATIENT
  Age: 78 Year
  Sex: Female
  Weight: 90.7 kg

DRUGS (6)
  1. EXENATIDE(EXENATIDE) PEN,DISPOSABLE [Suspect]
     Indication: TYPE 2 DIABETES MELLITUS
     Dosage: SEE IMAGE
     Route: 058
     Dates: end: 20080101
  2. EXENATIDE(EXENATIDE) PEN,DISPOSABLE [Suspect]
     Indication: TYPE 2 DIABETES MELLITUS
     Dosage: SEE IMAGE
     Route: 058
     Dates: start: 20060709, end: 20080319
  3. EXENATIDE(EXENATIDE) PEN,DISPOSABLE [Suspect]
  4. METFORMIN HCL [Concomitant]
  5. POTASSIUM CHLORIDE [Concomitant]
  6. AN UNSPECIFIED BETA BLOCKER [Concomitant]

REACTIONS (14)
  - ABDOMINAL PAIN UPPER [None]
  - ASTHENIA [None]
  - BLOOD GLUCOSE INCREASED [None]
  - DECREASED APPETITE [None]
  - DEPRESSED MOOD [None]
  - FATIGUE [None]
  - INCORRECT DOSE ADMINISTERED [None]
  - INFREQUENT BOWEL MOVEMENTS [None]
  - INSOMNIA [None]
  - LAZINESS [None]
  - MALAISE [None]
  - NAUSEA [None]
  - NIGHTMARE [None]
  - WEIGHT DECREASED [None]
